FAERS Safety Report 11375053 (Version 2)
Quarter: 2016Q2

REPORT INFORMATION
  Report Type: Spontaneous
  Country: US (occurrence: US)
  Receive Date: 20150813
  Receipt Date: 20160510
  Transmission Date: 20160815
  Serious: No
  Sender: FDA-Public Use
  Company Number: US-ACTELION PHARMACEUTICALS US, INC.-A-US2015-120337

PATIENT
  Age: 48 Year
  Sex: Female

DRUGS (3)
  1. REVATIO [Concomitant]
     Active Substance: SILDENAFIL CITRATE
  2. OPSUMIT [Suspect]
     Active Substance: MACITENTAN
     Indication: PULMONARY ARTERIAL HYPERTENSION
     Dosage: 10 MG, QD
     Route: 048
     Dates: start: 20150601
  3. TYVASO [Concomitant]
     Active Substance: TREPROSTINIL

REACTIONS (4)
  - Ear infection [Unknown]
  - Sinus congestion [Unknown]
  - Nasal congestion [Unknown]
  - Hypersensitivity [Unknown]
